FAERS Safety Report 21357235 (Version 1)
Quarter: 2022Q3

REPORT INFORMATION
  Report Type: Spontaneous
  Country: CZ (occurrence: None)
  Receive Date: 20220921
  Receipt Date: 20220921
  Transmission Date: 20221027
  Serious: Yes (Other)
  Sender: FDA-Public Use
  Company Number: 2022A320069

PATIENT
  Age: 25965 Day
  Sex: Female
  Weight: 52 kg

DRUGS (5)
  1. IMFINZI [Suspect]
     Active Substance: DURVALUMAB
     Indication: Small cell lung cancer extensive stage
     Route: 042
  2. ETOPOSIDE [Suspect]
     Active Substance: ETOPOSIDE
     Indication: Chemotherapy
     Route: 041
     Dates: start: 20220629, end: 20220722
  3. CISPLATIN [Suspect]
     Active Substance: CISPLATIN
     Indication: Chemotherapy
     Route: 041
     Dates: start: 20220629, end: 20220629
  4. BLINDED ETOPOSID [Concomitant]
     Indication: Chemotherapy
     Route: 041
     Dates: start: 20220629, end: 20220722
  5. FILGRASTIM [Concomitant]
     Active Substance: FILGRASTIM
     Indication: Marrow hyperplasia
     Dosage: 30000000 IU
     Route: 058
     Dates: start: 20220811, end: 20220815

REACTIONS (1)
  - Haematotoxicity [Recovered/Resolved]

NARRATIVE: CASE EVENT DATE: 20220811
